FAERS Safety Report 5499098-1 (Version None)
Quarter: 2007Q4

REPORT INFORMATION
  Report Type: 
  Country: None (occurrence: None)
  Receive Date: 20071026
  Receipt Date: 20070530
  Transmission Date: 20080405
  Serious: No
  Sender: FDA-Public Use
  Company Number: A0653536A

PATIENT
  Age: 54 Year
  Sex: Female

DRUGS (9)
  1. ADVAIR DISKUS 100/50 [Suspect]
     Indication: EMPHYSEMA
     Route: 055
     Dates: start: 20061101
  2. SPIRIVA [Concomitant]
  3. WARFARIN [Concomitant]
  4. PROTONIX [Concomitant]
  5. LEVAQUIN [Concomitant]
  6. DIGITEK [Concomitant]
  7. CARTIA XT [Concomitant]
  8. PREDNISONE [Concomitant]
  9. VICODIN [Concomitant]

REACTIONS (2)
  - BACK PAIN [None]
  - MALAISE [None]
